FAERS Safety Report 8908274 (Version 1)
Quarter: 2012Q4

REPORT INFORMATION
  Report Type: 
  Country: US (occurrence: US)
  Receive Date: 20121114
  Receipt Date: 20121114
  Transmission Date: 20130627
  Serious: Yes (Other)
  Sender: FDA-Public Use
  Company Number: CHPA2012US023160

PATIENT
  Age: 70 Year
  Sex: Male

DRUGS (7)
  1. EXCEDRIN ES BACK + BODY [Suspect]
     Indication: BACK PAIN
     Dosage: 2 DF, PRN
     Route: 048
     Dates: start: 2007
  2. DAILY MULTIVITAMIN [Concomitant]
     Indication: VITAMIN SUPPLEMENTATION
     Dosage: Unk, Unk
  3. CALCIUM D                          /01483701/ [Concomitant]
     Indication: VITAMIN SUPPLEMENTATION
     Dosage: Unk, Unk
  4. VITAMIN C [Concomitant]
     Indication: VITAMIN SUPPLEMENTATION
     Dosage: Unk, Unk
  5. VITAMIN B 12 [Concomitant]
     Indication: VITAMIN SUPPLEMENTATION
     Dosage: Unk, Unk
  6. BABY ASPIRIN [Concomitant]
     Dosage: Unk, Unk
  7. SIMVASTATIN [Concomitant]
     Indication: BLOOD CHOLESTEROL ABNORMAL
     Dosage: 40 mg, IN THE EVENING

REACTIONS (3)
  - Renal cell carcinoma [Recovered/Resolved]
  - Diabetes mellitus [Not Recovered/Not Resolved]
  - Blood cholesterol abnormal [Not Recovered/Not Resolved]
